FAERS Safety Report 20841153 (Version 4)
Quarter: 2022Q3

REPORT INFORMATION
  Report Type: Spontaneous
  Country: GB (occurrence: GB)
  Receive Date: 20220517
  Receipt Date: 20220725
  Transmission Date: 20221026
  Serious: Yes (Hospitalization, Other)
  Sender: FDA-Public Use
  Company Number: GB-BIOGEN-2022BI01123493

PATIENT
  Sex: Female

DRUGS (7)
  1. NUSINERSEN [Suspect]
     Active Substance: NUSINERSEN
     Indication: Spinal muscular atrophy
     Route: 050
  2. NUSINERSEN [Suspect]
     Active Substance: NUSINERSEN
     Route: 050
     Dates: start: 20220302
  3. DOMPERIDONE [Concomitant]
     Active Substance: DOMPERIDONE
     Indication: Product used for unknown indication
     Route: 050
  4. VITAMINS [Concomitant]
     Active Substance: VITAMINS
     Indication: Product used for unknown indication
     Route: 050
  5. ALBUTEROL [Concomitant]
     Active Substance: ALBUTEROL
     Indication: Product used for unknown indication
     Dosage: OR 2.5 ML T.D.S.
     Route: 050
  6. OMEPRAZOLE [Concomitant]
     Active Substance: OMEPRAZOLE
     Indication: Product used for unknown indication
     Route: 050
  7. AZITHROMYCIN [Concomitant]
     Active Substance: AZITHROMYCIN
     Indication: Prophylaxis
     Route: 050

REACTIONS (4)
  - Respiratory syncytial virus infection [Unknown]
  - Cardiac arrest [Unknown]
  - Hypoglycaemia [Recovered/Resolved]
  - Brain hypoxia [Unknown]

NARRATIVE: CASE EVENT DATE: 20220414
